FAERS Safety Report 5072141-X (Version None)
Quarter: 2006Q3

REPORT INFORMATION
  Report Type: 
  Country: None (occurrence: None)
  Receive Date: 20060807
  Receipt Date: 20060412
  Transmission Date: 20061208
  Serious: Yes (Other)
  Sender: FDA-Public Use
  Company Number: PHEH2006US04868

PATIENT
  Age: 13 Year
  Sex: Male
  Weight: 41.8 kg

DRUGS (3)
  1. EXJADE [Suspect]
     Indication: BLOOD IRON INCREASED
     Dosage: 750 MG, QD
     Route: 048
     Dates: start: 20060502
  2. EXJADE [Suspect]
     Dosage: 750 MG, QD
     Route: 048
     Dates: start: 20060307
  3. EXJADE [Suspect]
     Dosage: 500 MG, QD
     Route: 048
     Dates: start: 20060412, end: 20060501

REACTIONS (7)
  - ALANINE AMINOTRANSFERASE INCREASED [None]
  - ASPARTATE AMINOTRANSFERASE INCREASED [None]
  - BLOOD BILIRUBIN INCREASED [None]
  - LIVER FUNCTION TEST ABNORMAL [None]
  - NEUTROPENIA [None]
  - NEUTROPHIL COUNT DECREASED [None]
  - WHITE BLOOD CELL COUNT DECREASED [None]
